FAERS Safety Report 10978257 (Version 1)
Quarter: 2015Q2

REPORT INFORMATION
  Report Type: Spontaneous
  Country: DE (occurrence: DE)
  Receive Date: 20150402
  Receipt Date: 20150402
  Transmission Date: 20150821
  Serious: Yes (Hospitalization)
  Sender: FDA-Public Use
  Company Number: DE-EISAI MEDICAL RESEARCH-EC-2015-005500

PATIENT
  Age: 14 Year
  Sex: Female
  Weight: 47 kg

DRUGS (4)
  1. BEER [Suspect]
     Active Substance: ALCOHOL
     Route: 048
     Dates: start: 20150327, end: 20150327
  2. CLOBAZAM [Suspect]
     Active Substance: CLOBAZAM
     Route: 048
     Dates: start: 20150327, end: 20150327
  3. LAMOTRIGIN [Suspect]
     Active Substance: LAMOTRIGINE
     Route: 048
     Dates: start: 20150327, end: 20150327
  4. ZONEGRAN [Suspect]
     Active Substance: ZONISAMIDE
     Route: 048
     Dates: start: 20150327, end: 20150327

REACTIONS (6)
  - Intentional overdose [Recovered/Resolved]
  - Vomiting [Recovered/Resolved]
  - Suicide attempt [Recovered/Resolved]
  - Ataxia [Recovered/Resolved]
  - Fatigue [Recovered/Resolved]
  - Drug diversion [Recovered/Resolved]

NARRATIVE: CASE EVENT DATE: 20150327
